FAERS Safety Report 24773929 (Version 1)
Quarter: 2024Q4

REPORT INFORMATION
  Report Type: Spontaneous
  Country: FR (occurrence: FR)
  Receive Date: 20241225
  Receipt Date: 20241225
  Transmission Date: 20250115
  Serious: Yes (Death, Other)
  Sender: CIPLA
  Company Number: FR-AFSSAPS-LL2024002271

PATIENT

DRUGS (1)
  1. RIVAROXABAN [Suspect]
     Active Substance: RIVAROXABAN
     Indication: Pulmonary embolism
     Dosage: 2 DOSAGE FORM
     Route: 048
     Dates: start: 20241112, end: 20241117

REACTIONS (2)
  - Shock [Fatal]
  - Haematemesis [Fatal]

NARRATIVE: CASE EVENT DATE: 20241117
